FAERS Safety Report 11108380 (Version 2)
Quarter: 2015Q2

REPORT INFORMATION
  Report Type: Spontaneous
  Country: US (occurrence: US)
  Receive Date: 20150512
  Receipt Date: 20150609
  Transmission Date: 20150821
  Serious: No
  Sender: FDA-Public Use
  Company Number: US-009507513-1505USA003220

PATIENT
  Sex: Female

DRUGS (1)
  1. NEXPLANON [Suspect]
     Active Substance: ETONOGESTREL
     Dosage: 1 ROD / ONCE EVERY THREE YEARS
     Route: 059
     Dates: end: 201504

REACTIONS (2)
  - Device breakage [Recovered/Resolved]
  - No adverse event [Unknown]
